FAERS Safety Report 8349330-1 (Version None)
Quarter: 2012Q2

REPORT INFORMATION
  Report Type: 
  Country: None (occurrence: None)
  Receive Date: 20120510
  Receipt Date: 20120508
  Transmission Date: 20120825
  Serious: Yes (Death)
  Sender: FDA-Public Use
  Company Number: PHHY2011AU116250

PATIENT
  Sex: Female

DRUGS (17)
  1. DULCOLAX [Concomitant]
     Dosage: 1 DF 3RD MORNING AS REQUIRED
     Route: 054
  2. ATROPINE SULFATE [Concomitant]
     Dosage: 1 DF, QID
     Route: 042
  3. COLOXYL WITH SENNA [Concomitant]
     Dosage: 2 DF IN MORNING AS REQURIED
     Route: 048
  4. PNEUMOVAX 23 [Concomitant]
     Dosage: UNK UKN, UNK
     Dates: start: 20100924
  5. MORPHINE SULFATE [Concomitant]
     Dosage: 10 MG, Q2H
     Route: 030
  6. NITROLINGUAL [Concomitant]
     Dosage: 1 DF, UNK
  7. PANAMAX [Concomitant]
     Dosage: 500 MG, QID
     Route: 048
  8. VITAMIN D [Concomitant]
     Dosage: TAKE ORALLYEVERY 3/12
     Route: 048
  9. MAXOLON [Concomitant]
     Dosage: 1 DF, TID
     Route: 030
  10. PNEUMOVAX 23 [Concomitant]
     Dosage: UNK UKN, UNK
     Dates: start: 20050911
  11. PANVAX H1N1 [Concomitant]
     Dosage: UNK UKN, UNK
     Dates: start: 20091124
  12. PERINDOPRIL ERBUMINE [Concomitant]
     Dosage: 1 DF IN MORNING
     Route: 048
  13. ZOLEDRONOC ACID [Suspect]
     Indication: OSTEOPOROSIS
     Dosage: 5 MG, UNK
     Route: 042
  14. CALCIUM CARBONATE [Concomitant]
     Dosage: 1 DF MORNING
     Route: 048
  15. INFLUENZA VACCINE [Concomitant]
     Dosage: UNK UKN, UNK
     Dates: start: 20110412
  16. ARGININE [Concomitant]
     Dosage: UNK UKN, UNK
  17. TED STOCKINGS [Concomitant]
     Dosage: UNK UKN, UNK

REACTIONS (2)
  - CHEST PAIN [None]
  - MYOCARDIAL INFARCTION [None]
